FAERS Safety Report 5959463-2 (Version None)
Quarter: 2008Q4

REPORT INFORMATION
  Report Type: 
  Country: None (occurrence: None)
  Receive Date: 20081120
  Receipt Date: 20081111
  Transmission Date: 20090506
  Serious: Yes (Other)
  Sender: FDA-Public Use
  Company Number: US-BAYER-200615035BWH

PATIENT
  Age: 71 Year
  Sex: Male
  Weight: 61 kg

DRUGS (25)
  1. SORAFENIB [Suspect]
     Indication: NON-SMALL CELL LUNG CANCER
     Dosage: TOTAL DAILY DOSE: 800 MG  UNIT DOSE: 200 MG
     Route: 048
     Dates: start: 20060620, end: 20060725
  2. SORAFENIB [Suspect]
     Dosage: TOTAL DAILY DOSE: 800 MG  UNIT DOSE: 200 MG
     Route: 048
     Dates: start: 20060704, end: 20060707
  3. SORAFENIB [Suspect]
     Dosage: AS USED: 400 MG  UNIT DOSE: 200 MG
     Route: 048
     Dates: start: 20060626, end: 20060626
  4. SORAFENIB [Suspect]
     Dosage: AS USED: 400 MG  UNIT DOSE: 200 MG
     Route: 048
     Dates: start: 20060703, end: 20060703
  5. SORAFENIB [Suspect]
     Dosage: TOTAL DAILY DOSE: 800 MG  UNIT DOSE: 200 MG
     Route: 048
     Dates: start: 20060710, end: 20060725
  6. CARBOPLATIN [Suspect]
     Indication: NON-SMALL CELL LUNG CANCER
     Route: 042
     Dates: start: 20060619, end: 20060619
  7. CARBOPLATIN [Suspect]
     Route: 042
     Dates: start: 20060710, end: 20060710
  8. PACLITAXEL [Suspect]
     Indication: NON-SMALL CELL LUNG CANCER
     Route: 042
     Dates: start: 20060710, end: 20060710
  9. PACLITAXEL [Suspect]
     Route: 042
     Dates: start: 20060619, end: 20060619
  10. PREVACID [Concomitant]
     Indication: GASTROOESOPHAGEAL REFLUX DISEASE
     Dates: start: 19990301
  11. VICODIN [Concomitant]
     Indication: MUSCULOSKELETAL CHEST PAIN
     Dates: start: 20060425, end: 20060710
  12. ATENOLOL [Concomitant]
     Indication: HYPERTENSION
     Dates: start: 20020101
  13. ASPIRIN [Concomitant]
     Indication: PROPHYLAXIS
     Dates: start: 20020101
  14. ZANTAC [Concomitant]
     Indication: GASTROOESOPHAGEAL REFLUX DISEASE
     Dates: start: 20060623, end: 20060623
  15. ATIVAN [Concomitant]
     Indication: INSOMNIA
     Dates: start: 20060623
  16. IMODIUM [Concomitant]
     Indication: DIARRHOEA
     Dates: start: 20060624, end: 20060710
  17. SUCRALFATE [Concomitant]
     Indication: GASTROOESOPHAGEAL REFLUX DISEASE
     Dates: start: 20060101
  18. ZOFRAN [Concomitant]
     Indication: NAUSEA
     Dates: start: 20060622, end: 20060710
  19. REGLAN [Concomitant]
     Indication: HICCUPS
     Dates: start: 20060620, end: 20060710
  20. THORAZINE [Concomitant]
     Indication: HICCUPS
     Dates: start: 20060620, end: 20060710
  21. DIFLUCAN [Concomitant]
     Indication: ORAL CANDIDIASIS
     Dates: start: 20060626, end: 20060710
  22. TYLENOL (CAPLET) [Concomitant]
     Indication: PYREXIA
     Dates: start: 20060717, end: 20060717
  23. CEPACOL [Concomitant]
     Indication: COUGH
     Dates: start: 20060717
  24. LUNESTA [Concomitant]
     Indication: INSOMNIA
     Dates: start: 20060717, end: 20060812
  25. DECADRON [Concomitant]
     Indication: DRUG RASH WITH EOSINOPHILIA AND SYSTEMIC SYMPTOMS
     Route: 048
     Dates: start: 20060618, end: 20060718

REACTIONS (1)
  - DEEP VEIN THROMBOSIS [None]
